FAERS Safety Report 14995616 (Version 3)
Quarter: 2018Q3

REPORT INFORMATION
  Report Type: Report from Study
  Country: ES (occurrence: ES)
  Receive Date: 20180611
  Receipt Date: 20180806
  Transmission Date: 20181010
  Serious: Yes (Hospitalization)
  Sender: FDA-Public Use
  Company Number: ES-LPDUSPRD-20180984

PATIENT
  Age: 65 Year
  Sex: Male
  Weight: 74.8 kg

DRUGS (20)
  1. AAS [Concomitant]
     Active Substance: ASPIRIN
     Dosage: 100MG, 1 IN 1 D
     Route: 065
  2. AMLODIPINE [Concomitant]
     Active Substance: AMLODIPINE BESYLATE
     Dosage: 10 MG, 1 IN 1 D
     Route: 065
  3. OMEPRAZOLE. [Concomitant]
     Active Substance: OMEPRAZOLE
     Dosage: 20 MG, 1 IN 1 D
     Route: 065
  4. ATORVASTATIN [Concomitant]
     Active Substance: ATORVASTATIN
     Dosage: 20 MG ,1 IN 1 D
     Route: 065
  5. ATORVASTATIN CALCIUM. [Concomitant]
     Active Substance: ATORVASTATIN CALCIUM
     Dosage: 20 MG
     Route: 048
     Dates: start: 20180406
  6. CLOPIDOGREL [Concomitant]
     Active Substance: CLOPIDOGREL BISULFATE
     Dosage: 75 MG, 1 IN 1 D
     Route: 065
  7. BISOPROLOL [Concomitant]
     Active Substance: BISOPROLOL
     Dosage: 5 MG, 1 IN 1 D
     Route: 067
  8. ACOVIL [Concomitant]
     Active Substance: RAMIPRIL
     Dosage: 2.5 MG
     Route: 048
     Dates: start: 20180406, end: 20180531
  9. LANTUS [Concomitant]
     Active Substance: INSULIN GLARGINE
     Dosage: 20 IU
     Route: 058
     Dates: start: 20180122
  10. METFORMIN HYDROCHLORIDE?EMPAGLIFLOZIN [Concomitant]
     Dosage: MET.1000MG/EMPAG.5MG 1 IN 12H
     Route: 065
  11. SEGURIL [Concomitant]
     Active Substance: FUROSEMIDE
     Dosage: 120 MG
     Route: 048
     Dates: start: 20180406
  12. VALSARTAN?SACUBITRIL [Concomitant]
     Dosage: SAC. 49MG/VAL. 51MG 1 IN 12H
     Route: 065
  13. FUROSEMIDE. [Concomitant]
     Active Substance: FUROSEMIDE
     Dosage: 80 MG, 1 IN 1 D
     Route: 065
  14. EPLERENONE. [Concomitant]
     Active Substance: EPLERENONE
     Dosage: 25 MG, 1 IN 1 D
     Route: 065
  15. ELECOR [Concomitant]
     Active Substance: EPLERENONE
     Dosage: 25 MG
     Route: 048
     Dates: start: 20180406
  16. FERINJECT [Suspect]
     Active Substance: FERRIC CARBOXYMALTOSE
     Dosage: 1000 MG, 1 TOTAL
     Route: 042
     Dates: start: 20180516, end: 20180516
  17. ADIRO [Concomitant]
     Active Substance: ASPIRIN
     Dosage: 100 MG
     Route: 048
     Dates: start: 20180406
  18. ENCONCOR [Concomitant]
     Dosage: 5 MG
     Route: 048
     Dates: start: 20180406
  19. DOXAZOSIN [Concomitant]
     Active Substance: DOXAZOSIN\DOXAZOSIN MESYLATE
     Dosage: 4 MG
     Route: 048
     Dates: start: 20180406
  20. SYNJARDY [Concomitant]
     Active Substance: EMPAGLIFLOZIN\METFORMIN HYDROCHLORIDE
     Dosage: 5/100MG/12 HOURS
     Route: 048
     Dates: start: 20180406

REACTIONS (1)
  - Acute pulmonary oedema [Recovered/Resolved]

NARRATIVE: CASE EVENT DATE: 20180524
